FAERS Safety Report 8714426 (Version 2)
Quarter: 2018Q4

REPORT INFORMATION
  Report Type: Spontaneous
  Country: FR (occurrence: FR)
  Receive Date: 20120809
  Receipt Date: 20180928
  Transmission Date: 20190205
  Serious: Yes (Other)
  Sender: FDA-Public Use
  Company Number: FR-SANOFI-AVENTIS-2012SA054842

PATIENT
  Age: 23 Year
  Sex: Male
  Weight: 83 kg

DRUGS (3)
  1. CLOMID [Suspect]
     Active Substance: CLOMIPHENE CITRATE
     Indication: STEROID THERAPY
     Dosage: 50 MG, TOTAL
     Route: 048
     Dates: start: 201205, end: 201205
  2. NANDROLONE DECANOATE. [Suspect]
     Active Substance: NANDROLONE DECANOATE
     Indication: MUSCLE MASS
     Dosage: 600 MG,QW
     Route: 030
     Dates: start: 201204, end: 201205
  3. SUSTANON [TESTOSTERONE ISOCAPROATE;TESTOSTERONE PHENYLPROPIONATE;TESTO [Suspect]
     Active Substance: TESTOSTERONE
     Indication: MUSCLE MASS
     Dosage: 1 DF,QW
     Route: 030
     Dates: start: 201204, end: 201205

REACTIONS (2)
  - Erectile dysfunction [Unknown]
  - Acute psychosis [Recovered/Resolved]

NARRATIVE: CASE EVENT DATE: 201205
